FAERS Safety Report 9425432 (Version 2)
Quarter: 2013Q3

REPORT INFORMATION
  Report Type: Spontaneous
  Country: US (occurrence: US)
  Receive Date: 20130729
  Receipt Date: 20130813
  Transmission Date: 20140515
  Serious: No
  Sender: FDA-Public Use
  Company Number: US-009507513-1307USA015896

PATIENT
  Age: 42 Year
  Sex: Female
  Weight: 87.75 kg

DRUGS (4)
  1. CLARITIN [Suspect]
     Indication: SEASONAL ALLERGY
     Dosage: 10 MG, QD
     Route: 048
     Dates: start: 20130318, end: 20130325
  2. CLARITIN [Suspect]
     Indication: ALLERGY TO ANIMAL
  3. CLARITIN [Suspect]
     Indication: HOUSE DUST ALLERGY
  4. NASONEX [Concomitant]
     Indication: HYPERSENSITIVITY
     Dosage: UNK, UNKNOWN

REACTIONS (1)
  - Drug ineffective [Unknown]
